FAERS Safety Report 5285178-2 (Version None)
Quarter: 2007Q2

REPORT INFORMATION
  Report Type: 
  Country: None (occurrence: None)
  Receive Date: 20070403
  Receipt Date: 20070330
  Transmission Date: 20071010
  Serious: Yes (Other)
  Sender: FDA-Public Use
  Company Number: 2006UW08402

PATIENT
  Age: 565 Month
  Sex: Male
  Weight: 113.6 kg

DRUGS (1)
  1. SEROQUEL [Suspect]
     Indication: SLEEP DISORDER
     Dosage: 100 MG/50 MG PO
     Dates: start: 20051001, end: 20061101

REACTIONS (5)
  - DIABETES MELLITUS [None]
  - HOMICIDE [None]
  - HYPERTENSION [None]
  - SUICIDAL BEHAVIOUR [None]
  - SUICIDE ATTEMPT [None]
